FAERS Safety Report 10944669 (Version 2)
Quarter: 2015Q2

REPORT INFORMATION
  Report Type: Spontaneous
  Country: US (occurrence: US)
  Receive Date: 20150323
  Receipt Date: 20150406
  Transmission Date: 20150821
  Serious: No
  Sender: FDA-Public Use
  Company Number: US-PFIZER INC-2015100155

PATIENT
  Age: 64 Year
  Sex: Female

DRUGS (1)
  1. ADVIL CONGESTION RELIEF [Suspect]
     Active Substance: IBUPROFEN\PHENYLEPHRINE HYDROCHLORIDE
     Indication: SINUS DISORDER

REACTIONS (3)
  - Drug ineffective [Unknown]
  - Wrong drug administered [Unknown]
  - Product packaging confusion [Unknown]
